FAERS Safety Report 5801952-5 (Version None)
Quarter: 2008Q3

REPORT INFORMATION
  Report Type: 
  Country: None (occurrence: None)
  Receive Date: 20080702
  Receipt Date: 20080624
  Transmission Date: 20090109
  Serious: Yes (Other)
  Sender: FDA-Public Use
  Company Number: 2008AL007665

PATIENT

DRUGS (1)
  1. ENULOSE [Suspect]
     Dosage: RTL
     Route: 054

REACTIONS (1)
  - GASTROINTESTINAL HAEMORRHAGE [None]
